FAERS Safety Report 17774277 (Version 1)
Quarter: 2020Q2

REPORT INFORMATION
  Report Type: Report from Study
  Country: FR (occurrence: FR)
  Receive Date: 20200513
  Receipt Date: 20200513
  Transmission Date: 20200714
  Serious: Yes (Hospitalization)
  Sender: FDA-Public Use
  Company Number: FR-SA-2020SA120299

PATIENT
  Age: 67 Year
  Sex: Male

DRUGS (7)
  1. PARACETAMOL [Concomitant]
     Active Substance: ACETAMINOPHEN
     Dosage: 300 UNK
     Route: 048
  2. DOCETAXEL. [Suspect]
     Active Substance: DOCETAXEL
     Indication: PROSTATE CANCER METASTATIC
     Dosage: 730 UNK, QCY
     Route: 042
     Dates: start: 20180917, end: 20180917
  3. GONADORELIN [Suspect]
     Active Substance: GONADORELIN
     Dosage: 1125 MG, QCY
     Route: 030
     Dates: start: 20181110, end: 20181110
  4. CAFFEINE. [Concomitant]
     Active Substance: CAFFEINE
     Dosage: 30 UNK
     Route: 048
  5. DOCETAXEL. [Suspect]
     Active Substance: DOCETAXEL
     Dosage: 100 MG, QCY
     Route: 042
     Dates: start: 20181110, end: 20181110
  6. GONADORELIN [Suspect]
     Active Substance: GONADORELIN
     Indication: PROSTATE CANCER METASTATIC
     Dosage: 78.75 MG, QCY
     Route: 030
     Dates: start: 20180924, end: 20180924
  7. OPIUM [MORPHINE] [Concomitant]
     Active Substance: MORPHINE
     Dosage: 10 UNK
     Route: 048

REACTIONS (1)
  - Lymphoma [Recovered/Resolved]

NARRATIVE: CASE EVENT DATE: 20200206
